FAERS Safety Report 4859909-7 (Version None)
Quarter: 2005Q4

REPORT INFORMATION
  Report Type: 
  Country: None (occurrence: None)
  Receive Date: 20051219
  Receipt Date: 20051213
  Transmission Date: 20060501
  Serious: Yes (Life-Threatening, Other)
  Sender: FDA-Public Use
  Company Number: PHBS2005IN18469

PATIENT
  Sex: Female

DRUGS (2)
  1. MIACALCIN [Suspect]
     Indication: SPINAL FRACTURE
     Dosage: UNK, QD
     Route: 045
  2. CITROMACALVIT (NCH) [Suspect]
     Indication: SPINAL FRACTURE
     Dosage: 1 DF, BID
     Route: 048

REACTIONS (1)
  - HYPERCALCAEMIA [None]
